FAERS Safety Report 25570077 (Version 1)
Quarter: 2025Q3

REPORT INFORMATION
  Report Type: Spontaneous
  Country: CA (occurrence: CA)
  Receive Date: 20250717
  Receipt Date: 20250717
  Transmission Date: 20251021
  Serious: Yes (Hospitalization)
  Sender: CHEPLAPHARM
  Company Number: CA-CHEPLA-2025008637

PATIENT
  Age: 19 Year
  Sex: Male
  Weight: 63 kg

DRUGS (18)
  1. QUETIAPINE [Interacting]
     Active Substance: QUETIAPINE
     Indication: Psychiatric care
     Dosage: DAILY DOSE: 400 MILLIGRAM
     Route: 048
  2. QUETIAPINE [Interacting]
     Active Substance: QUETIAPINE
     Indication: Psychiatric care
     Dosage: DAILY DOSE: 100 MILLIGRAM
     Route: 048
  3. QUETIAPINE [Interacting]
     Active Substance: QUETIAPINE
     Indication: Psychiatric care
     Dosage: DAILY DOSE: 500 MILLIGRAM
     Route: 048
  4. QUETIAPINE [Interacting]
     Active Substance: QUETIAPINE
     Indication: Psychiatric care
     Dosage: DAILY DOSE: 450 MILLIGRAM
     Route: 048
  5. CLOZAPINE [Interacting]
     Active Substance: CLOZAPINE
     Indication: Psychiatric care
     Dosage: DAILY DOSE: 2.5 MILLILITRE
     Route: 048
  6. CLOZAPINE [Interacting]
     Active Substance: CLOZAPINE
     Indication: Psychiatric care
  7. CLOZAPINE [Interacting]
     Active Substance: CLOZAPINE
     Indication: Psychiatric care
     Dosage: DAILY DOSE: 100 MILLIGRAM
     Route: 048
  8. BENZTROPINE MESYLATE [Interacting]
     Active Substance: BENZTROPINE MESYLATE
     Indication: Extrapyramidal disorder
     Route: 048
  9. BENZTROPINE MESYLATE [Interacting]
     Active Substance: BENZTROPINE MESYLATE
     Indication: Extrapyramidal disorder
     Dosage: 3 EVERY 24 HOUR?DAILY DOSE: 3 DOSAGE FORM
     Route: 030
  10. FLUVOXAMINE [Interacting]
     Active Substance: FLUVOXAMINE
     Indication: Psychiatric care
     Dosage: DAILY DOSE: 50 MILLIGRAM
     Route: 048
  11. FLUVOXAMINE [Interacting]
     Active Substance: FLUVOXAMINE
     Indication: Psychiatric care
     Dosage: DAILY DOSE: 12.5 MILLIGRAM
     Route: 048
  12. LORAZEPAM [Interacting]
     Active Substance: LORAZEPAM
     Indication: Agitation
     Route: 030
  13. LORAZEPAM [Interacting]
     Active Substance: LORAZEPAM
     Indication: Agitation
     Dosage: SUBLINGUAL
     Route: 048
  14. LOXAPINE SUCCINATE [Interacting]
     Active Substance: LOXAPINE SUCCINATE
     Indication: Agitation
     Dosage: DAILY DOSE: 1 DOSAGE FORM
     Route: 048
  15. LOXAPINE SUCCINATE [Interacting]
     Active Substance: LOXAPINE SUCCINATE
     Indication: Agitation
     Dosage: DAILY DOSE: 1 DOSAGE FORM
     Route: 048
  16. PROPRANOLOL [Interacting]
     Active Substance: PROPRANOLOL HYDROCHLORIDE
     Indication: Product used for unknown indication
     Dosage: DAILY DOSE: 20 MILLIGRAM
     Route: 048
  17. BREXPIPRAZOLE [Concomitant]
     Active Substance: BREXPIPRAZOLE
     Indication: Psychiatric care
     Dosage: DAILY DOSE: 1 MILLIGRAM
     Route: 048
  18. POLYETHYLENE GLYCOLS [Concomitant]
     Active Substance: POLYETHYLENE GLYCOLS
     Indication: Product used for unknown indication
     Dosage: DAILY DOSE: 17 GRAM
     Route: 048

REACTIONS (15)
  - Condition aggravated [Not Recovered/Not Resolved]
  - Confusional state [Not Recovered/Not Resolved]
  - Constipation [Not Recovered/Not Resolved]
  - Depression [Not Recovered/Not Resolved]
  - Drug interaction [Not Recovered/Not Resolved]
  - Drug level below therapeutic [Not Recovered/Not Resolved]
  - Dysphemia [Not Recovered/Not Resolved]
  - Fatigue [Not Recovered/Not Resolved]
  - Hypoaesthesia [Not Recovered/Not Resolved]
  - Memory impairment [Not Recovered/Not Resolved]
  - Mental disorder [Not Recovered/Not Resolved]
  - Sedation [Not Recovered/Not Resolved]
  - Somnolence [Not Recovered/Not Resolved]
  - Thinking abnormal [Not Recovered/Not Resolved]
  - Treatment noncompliance [Not Recovered/Not Resolved]
